FAERS Safety Report 7729253-9 (Version None)
Quarter: 2011Q3

REPORT INFORMATION
  Report Type: 
  Country: None (occurrence: None)
  Receive Date: 20110906
  Receipt Date: 20110829
  Transmission Date: 20111222
  Serious: Yes (Other)
  Sender: FDA-Public Use
  Company Number: BE-JNJFOC-20110900170

PATIENT
  Age: 34 Year
  Sex: Female

DRUGS (2)
  1. REMICADE [Suspect]
     Indication: PROCTOCOLITIS
     Route: 042
     Dates: start: 20090706, end: 20110801
  2. REMICADE [Suspect]
     Route: 042
     Dates: start: 20080123, end: 20090101

REACTIONS (2)
  - GLIOMA [None]
  - MYCOBACTERIUM TUBERCULOSIS COMPLEX TEST POSITIVE [None]
